FAERS Safety Report 21744778 (Version 1)
Quarter: 2022Q4

REPORT INFORMATION
  Report Type: Spontaneous
  Country: US (occurrence: US)
  Receive Date: 20221219
  Receipt Date: 20221219
  Transmission Date: 20230112
  Serious: Yes (Death, Hospitalization)
  Sender: FDA-Public Use
  Company Number: US-EUSA PHARMA (UK) LIMITED-2022US000602

PATIENT

DRUGS (1)
  1. SYLVANT [Suspect]
     Active Substance: SILTUXIMAB
     Indication: Castleman^s disease
     Dosage: ONCE EVERY THREE WEEKS AS INFUSION
     Route: 042

REACTIONS (2)
  - Adverse event [Fatal]
  - Road traffic accident [Fatal]
